FAERS Safety Report 4331619-4 (Version None)
Quarter: 2004Q1

REPORT INFORMATION
  Report Type: 
  Country: None (occurrence: None)
  Receive Date: 20040331
  Receipt Date: 20040317
  Transmission Date: 20041129
  Serious: Yes (Hospitalization)
  Sender: FDA-Public Use
  Company Number: FR_040203641

PATIENT
  Age: 49 Year
  Sex: Male
  Weight: 60 kg

DRUGS (6)
  1. GEMZAR [Suspect]
     Indication: NON-SMALL CELL LUNG CANCER
     Dosage: 1000 MG/M2/2 OTHER
     Route: 050
     Dates: start: 20000816, end: 20001024
  2. NAVELBINE [Concomitant]
  3. MITOMYCIN [Concomitant]
  4. IFOSFAMIDE [Concomitant]
  5. CISPLATIN [Concomitant]
  6. RADIATION THERAPY [Concomitant]

REACTIONS (2)
  - PULMONARY HYPERTENSION [None]
  - RIGHT VENTRICULAR FAILURE [None]
